FAERS Safety Report 9746920 (Version 1)
Quarter: 2013Q4

REPORT INFORMATION
  Report Type: Spontaneous
  Country: DE (occurrence: DE)
  Receive Date: 20131211
  Receipt Date: 20131211
  Transmission Date: 20140711
  Serious: Yes (Hospitalization)
  Sender: FDA-Public Use
  Company Number: DE-TEVA-447964GER

PATIENT
  Sex: Male

DRUGS (28)
  1. L-THYROXIN [Suspect]
     Route: 048
     Dates: start: 20120522, end: 20120524
  2. L-THYROXIN [Suspect]
     Route: 048
     Dates: start: 20120525, end: 20120529
  3. L-THYROXIN [Suspect]
     Route: 048
     Dates: start: 20120530, end: 20120604
  4. L-THYROXIN [Suspect]
     Route: 048
     Dates: start: 20120605, end: 20120613
  5. L-THYROXIN [Suspect]
     Route: 048
     Dates: start: 20120614, end: 20120618
  6. L-THYROXIN [Suspect]
     Route: 048
     Dates: start: 20120619, end: 20120624
  7. L-THYROXIN [Suspect]
     Route: 048
     Dates: start: 20120625, end: 20120627
  8. L-THYROXIN [Suspect]
     Route: 048
     Dates: start: 20120628, end: 20120701
  9. L-THYROXIN [Suspect]
     Route: 048
     Dates: start: 20120702, end: 20120704
  10. L-THYROXIN [Suspect]
     Route: 048
     Dates: start: 20120705, end: 20120706
  11. L-THYROXIN [Suspect]
     Route: 048
     Dates: start: 20120707, end: 20120710
  12. L-THYROXIN [Suspect]
     Route: 048
     Dates: start: 20120711, end: 20120716
  13. L-THYROXIN [Suspect]
     Route: 048
     Dates: start: 20120717, end: 20120719
  14. L-THYROXIN [Suspect]
     Route: 048
     Dates: start: 20120720, end: 20120723
  15. L-THYROXIN [Suspect]
     Route: 048
     Dates: start: 20120724, end: 20120726
  16. ARIPIPRAZOL [Concomitant]
     Route: 048
     Dates: start: 20120215, end: 20120809
  17. ARIPIPRAZOL [Concomitant]
     Route: 048
     Dates: start: 20120810
  18. BUPROPION [Concomitant]
     Route: 048
     Dates: start: 20120310, end: 20120816
  19. BUPROPION [Concomitant]
     Route: 048
     Dates: start: 20120817, end: 20120822
  20. BUPROPION [Concomitant]
     Route: 048
     Dates: start: 20120823
  21. LAMOTRIGIN [Concomitant]
     Route: 048
     Dates: start: 20120315, end: 20120325
  22. LAMOTRIGIN [Concomitant]
     Route: 048
     Dates: start: 20120326, end: 20120405
  23. LAMOTRIGIN [Concomitant]
     Route: 048
     Dates: start: 20120406, end: 20120416
  24. LAMOTRIGIN [Concomitant]
     Route: 048
     Dates: start: 20120417, end: 20120507
  25. LAMOTRIGIN [Concomitant]
     Route: 048
     Dates: start: 20120508, end: 20120524
  26. LAMOTRIGIN [Concomitant]
     Route: 048
     Dates: start: 20120525, end: 20120714
  27. LAMOTRIGIN [Concomitant]
     Route: 048
     Dates: start: 20120715, end: 20120816
  28. LAMOTRIGIN [Concomitant]
     Route: 048
     Dates: start: 20120817

REACTIONS (3)
  - Syncope [Recovered/Resolved]
  - Muscular weakness [Recovered/Resolved]
  - Dysarthria [Recovered/Resolved]
